FAERS Safety Report 23937127 (Version 1)
Quarter: 2024Q2

REPORT INFORMATION
  Report Type: Spontaneous
  Country: US (occurrence: US)
  Receive Date: 20240604
  Receipt Date: 20240604
  Transmission Date: 20240715
  Serious: No
  Sender: FDA-Public Use
  Company Number: US-AMGEN-USASP2024108340

PATIENT
  Sex: Male

DRUGS (6)
  1. PREDNISONE [Suspect]
     Active Substance: PREDNISONE
     Indication: Proctitis viral
     Dosage: 40 MILLIGRAM, QD (FOR TWO WEEKS)
     Route: 065
  2. PREDNISONE [Suspect]
     Active Substance: PREDNISONE
     Indication: Cytomegalovirus infection
  3. MESALAMINE [Concomitant]
     Active Substance: MESALAMINE
     Indication: Proctitis viral
     Route: 054
  4. MESALAMINE [Concomitant]
     Active Substance: MESALAMINE
     Indication: Cytomegalovirus infection
  5. SERTRALINE [Concomitant]
     Active Substance: SERTRALINE HYDROCHLORIDE
     Indication: Depression
  6. SARS-CoV-2 vaccine [Concomitant]

REACTIONS (2)
  - Drug effective for unapproved indication [Unknown]
  - Off label use [Unknown]
